FAERS Safety Report 9279958 (Version 5)
Quarter: 2013Q2

REPORT INFORMATION
  Report Type: Report from Study
  Country: DE (occurrence: DE)
  Receive Date: 20130509
  Receipt Date: 20130625
  Transmission Date: 20140414
  Serious: Yes (Hospitalization)
  Sender: FDA-Public Use
  Company Number: DE-ROCHE-1222500

PATIENT
  Sex: Male
  Weight: 98 kg

DRUGS (3)
  1. BEVACIZUMAB [Suspect]
     Indication: BRONCHIAL CARCINOMA
     Route: 042
     Dates: start: 20130425, end: 20130425
  2. CIPROBAY [Suspect]
     Indication: PYREXIA
     Route: 048
     Dates: start: 20130428, end: 20130502
  3. AMOXICILLIN TRIHYDRATE/CLAVULANATE POTASSIUM [Suspect]
     Indication: PYREXIA
     Route: 065

REACTIONS (7)
  - Duodenal ulcer [Recovered/Resolved]
  - Pyrexia [Recovered/Resolved]
  - Vomiting [Recovered/Resolved]
  - Dermatitis allergic [Recovered/Resolved]
  - Melaena [Recovered/Resolved]
  - Upper gastrointestinal haemorrhage [Recovered/Resolved]
  - Gastrooesophageal reflux disease [Recovered/Resolved]
